FAERS Safety Report 20937589 (Version 5)
Quarter: 2023Q2

REPORT INFORMATION
  Report Type: Report from Study
  Country: RO (occurrence: RO)
  Receive Date: 20220609
  Receipt Date: 20230402
  Transmission Date: 20230721
  Serious: Yes (Hospitalization)
  Sender: FDA-Public Use
  Company Number: RO-ABBVIE-22K-135-4425079-00

PATIENT
  Age: 70 Year
  Sex: Male

DRUGS (2)
  1. CARBIDOPA\LEVODOPA [Suspect]
     Active Substance: CARBIDOPA\LEVODOPA
     Indication: Parkinson^s disease
     Dosage: DM 11.50 DC 3.20 ED 1.60 NR ED 2 DMN 0.00 DCN 0.00 EDN 0.00 NREDN 0
     Route: 050
     Dates: start: 20150114, end: 20220606
  2. CARBIDOPA\LEVODOPA [Suspect]
     Active Substance: CARBIDOPA\LEVODOPA
     Route: 050

REACTIONS (5)
  - Medical device site injury [Recovering/Resolving]
  - Behaviour disorder [Not Recovered/Not Resolved]
  - Device dislocation [Unknown]
  - Stoma site hypergranulation [Recovering/Resolving]
  - Dementia Alzheimer^s type [Not Recovered/Not Resolved]

NARRATIVE: CASE EVENT DATE: 20220217
